FAERS Safety Report 13054356 (Version 1)
Quarter: 2016Q4

REPORT INFORMATION
  Report Type: Spontaneous
  Country: CN (occurrence: CN)
  Receive Date: 20161222
  Receipt Date: 20161222
  Transmission Date: 20170207
  Serious: Yes (Hospitalization)
  Sender: FDA-Public Use
  Company Number: CN-BAYER-2016-238126

PATIENT
  Age: 76 Year
  Sex: Male
  Weight: 60 kg

DRUGS (3)
  1. BAYASPIRIN 100 MG [Suspect]
     Active Substance: ASPIRIN
     Indication: CORONARY ARTERY BYPASS
     Dosage: 100 MG, QD
     Route: 048
     Dates: start: 20160313, end: 20161016
  2. LIPITOR [Concomitant]
     Active Substance: ATORVASTATIN CALCIUM
     Indication: DYSLIPIDAEMIA
     Dosage: 20 MG, QD
     Route: 048
     Dates: start: 20160313, end: 20161016
  3. PLAVIX [Suspect]
     Active Substance: CLOPIDOGREL BISULFATE
     Indication: CORONARY ARTERY BYPASS
     Dosage: 75 MG, QD
     Route: 048
     Dates: start: 20160313, end: 20161016

REACTIONS (4)
  - Hyperhidrosis [Recovering/Resolving]
  - Nausea [Recovering/Resolving]
  - Vomiting [Recovering/Resolving]
  - Abdominal distension [Recovering/Resolving]

NARRATIVE: CASE EVENT DATE: 20161016
